FAERS Safety Report 8061865-8 (Version None)
Quarter: 2012Q1

REPORT INFORMATION
  Report Type: 
  Country: None (occurrence: None)
  Receive Date: 20120117
  Receipt Date: 20111231
  Transmission Date: 20120608
  Serious: Yes (Other)
  Sender: FDA-Public Use
  Company Number: 1000026737

PATIENT
  Sex: Female

DRUGS (1)
  1. THYROID TAB [Suspect]
     Indication: HYPOTHYROIDISM
     Dosage: ORAL
     Route: 048
     Dates: start: 20000101

REACTIONS (4)
  - LABORATORY TEST ABNORMAL [None]
  - HYPOTHYROIDISM [None]
  - PRODUCT QUALITY ISSUE [None]
  - WEIGHT INCREASED [None]
